FAERS Safety Report 18343820 (Version 1)
Quarter: 2020Q4

REPORT INFORMATION
  Report Type: Spontaneous
  Country: US (occurrence: US)
  Receive Date: 20201005
  Receipt Date: 20201005
  Transmission Date: 20210114
  Serious: No
  Sender: FDA-Public Use
  Company Number: US-CIPHER-2020-US-000292

PATIENT
  Age: 50 Year
  Sex: Female
  Weight: 63.5 kg

DRUGS (4)
  1. REMODULIN [Suspect]
     Active Substance: TREPROSTINIL
     Indication: PULMONARY ARTERIAL HYPERTENSION
     Route: 058
     Dates: start: 20180905
  2. ADEMPAS [Concomitant]
     Active Substance: RIOCIGUAT
  3. OPSUMIT [Concomitant]
     Active Substance: MACITENTAN
  4. TRAMADOL HYDROCHLORIDE. [Suspect]
     Active Substance: TRAMADOL HYDROCHLORIDE
     Indication: INFUSION SITE PAIN
     Dosage: UNKNOWN DOSE
     Route: 065

REACTIONS (3)
  - Vomiting [Unknown]
  - Infusion site pain [Unknown]
  - Infusion site swelling [Unknown]
